FAERS Safety Report 9447607 (Version 1)
Quarter: 2013Q3

REPORT INFORMATION
  Report Type: Spontaneous
  Country: US (occurrence: None)
  Receive Date: 20130807
  Receipt Date: 20130807
  Transmission Date: 20140515
  Serious: Yes (Death)
  Sender: FDA-Public Use
  Company Number: None

PATIENT
  Age: 65 Year
  Sex: Female
  Weight: 74.8 kg

DRUGS (13)
  1. ABELCET [Suspect]
     Indication: MENINGITIS CRYPTOCOCCAL
     Dosage: 374MG Q24 IV @ 16:59
     Route: 042
     Dates: start: 20130805
  2. TYLENOL IV [Concomitant]
  3. DUONEB [Concomitant]
  4. AMIODARONE [Concomitant]
  5. ASPIRIN [Concomitant]
  6. CHLORHEXIDINE [Concomitant]
  7. DOCUSATE [Concomitant]
  8. ENOXAPARIN [Concomitant]
  9. FUROSEMIDE [Concomitant]
  10. METOPROLOL [Concomitant]
  11. PANTOPRAZOLE [Concomitant]
  12. VANCOMYCINE [Concomitant]
  13. DIPHENHYDRAMINE [Concomitant]

REACTIONS (3)
  - Nodal rhythm [None]
  - Bradycardia [None]
  - Cardio-respiratory arrest [None]
